FAERS Safety Report 7874892-8 (Version None)
Quarter: 2011Q4

REPORT INFORMATION
  Report Type: 
  Country: None (occurrence: None)
  Receive Date: 20111031
  Receipt Date: 20111024
  Transmission Date: 20120403
  Serious: Yes (Other)
  Sender: FDA-Public Use
  Company Number: FR-JNJFOC-20111012872

PATIENT

DRUGS (32)
  1. MESNA [Suspect]
     Route: 042
  2. NEUPOGEN [Concomitant]
     Route: 065
  3. DOXORUBICIN HCL [Suspect]
     Route: 042
  4. ELDISINE [Suspect]
     Route: 065
  5. PREDNISONE [Suspect]
     Indication: LYMPHOMA
     Route: 048
  6. ELDISINE [Suspect]
     Route: 065
  7. BLEOMYCIN SULFATE [Suspect]
     Route: 042
  8. CYTARABINE [Suspect]
     Indication: LYMPHOMA
     Route: 065
  9. ETOPOSIDE [Suspect]
     Indication: LYMPHOMA
     Route: 065
  10. IFOSFAMIDE [Suspect]
     Route: 065
  11. DOXORUBICIN HCL [Suspect]
     Route: 042
  12. ELDISINE [Suspect]
     Route: 065
  13. CYTARABINE [Suspect]
     Route: 065
  14. IFOSFAMIDE [Suspect]
     Route: 065
  15. IFOSFAMIDE [Suspect]
     Route: 065
  16. DOXORUBICIN HCL [Suspect]
     Route: 042
  17. CYCLOPHOSPHAMIDE [Suspect]
     Route: 065
  18. MESNA [Suspect]
     Indication: LYMPHOMA
     Route: 042
  19. MESNA [Suspect]
     Route: 042
  20. ELDISINE [Suspect]
     Indication: LYMPHOMA
     Route: 065
  21. BLEOMYCIN SULFATE [Suspect]
     Indication: LYMPHOMA
     Route: 042
  22. METHOTREXATE [Suspect]
     Route: 065
  23. CYCLOPHOSPHAMIDE [Suspect]
     Indication: LYMPHOMA
     Route: 065
  24. CYCLOPHOSPHAMIDE [Suspect]
     Route: 065
  25. MESNA [Suspect]
     Route: 042
  26. BLEOMYCIN SULFATE [Suspect]
     Route: 042
  27. METHOTREXATE [Suspect]
     Route: 065
  28. IFOSFAMIDE [Suspect]
     Indication: LYMPHOMA
     Route: 065
  29. DOXORUBICIN HCL [Suspect]
     Indication: LYMPHOMA
     Route: 042
  30. CYCLOPHOSPHAMIDE [Suspect]
     Route: 065
  31. BLEOMYCIN SULFATE [Suspect]
     Route: 042
  32. METHOTREXATE [Suspect]
     Indication: LYMPHOMA
     Route: 037

REACTIONS (1)
  - NEPHROPATHY TOXIC [None]
